FAERS Safety Report 9111205 (Version 2)
Quarter: 2014Q1

REPORT INFORMATION
  Report Type: Spontaneous
  Country: US (occurrence: US)
  Receive Date: 20130219
  Receipt Date: 20140213
  Transmission Date: 20141002
  Serious: No
  Sender: FDA-Public Use
  Company Number: US-BRISTOL-MYERS SQUIBB COMPANY-16735342

PATIENT
  Age: 59 Year
  Sex: Female
  Weight: 60.77 kg

DRUGS (1)
  1. ABATACEPT SUBQ INJECTION 125MG/ML [Suspect]
     Dosage: SUBCUTANEOUS FOR 4 WKS
     Route: 042

REACTIONS (2)
  - Injection site reaction [Unknown]
  - Drug ineffective [Unknown]
